FAERS Safety Report 23023938 (Version 1)
Quarter: 2023Q4

REPORT INFORMATION
  Report Type: Spontaneous
  Country: FR (occurrence: FR)
  Receive Date: 20231003
  Receipt Date: 20231003
  Transmission Date: 20240110
  Serious: Yes (Congenital Anomaly, Other)
  Sender: FDA-Public Use
  Company Number: None

PATIENT
  Sex: Female

DRUGS (1)
  1. ELIQUIS [Suspect]
     Active Substance: APIXABAN
     Indication: Product used for unknown indication
     Route: 064
     Dates: end: 20221129

REACTIONS (3)
  - Foetal growth restriction [Recovering/Resolving]
  - Congenital anomaly [Unknown]
  - Foetal exposure during pregnancy [Unknown]
